FAERS Safety Report 7085278 (Version 1)
Quarter: 2020Q3

REPORT INFORMATION
  Report Type: Report from Study
  Country: US (occurrence: US)
  Receive Date: 20060413
  Receipt Date: 20060413
  Transmission Date: 20201104
  Serious: Yes (Other)
  Sender: FDA-Public Use
  Company Number: 2006UW01739

PATIENT
  Age: 63 Year
  Sex: Male

DRUGS (4)
  1. CEDIRANIB. [Suspect]
     Active Substance: CEDIRANIB
     Indication: NON-SMALL CELL LUNG CANCER
     Route: 048
     Dates: start: 20051109, end: 20051128
  2. CEDIRANIB. [Suspect]
     Active Substance: CEDIRANIB
     Route: 048
     Dates: start: 20051214, end: 20060131
  3. CEDIRANIB. [Suspect]
     Active Substance: CEDIRANIB
     Route: 048
     Dates: start: 20051130, end: 20051212
  4. PEMETREXED DISODIUM [Suspect]
     Active Substance: PEMETREXED DISODIUM
     Indication: NON-SMALL CELL LUNG CANCER
     Dates: start: 20051107

REACTIONS (1)
  - Demyelination [Not Recovered/Not Resolved]

NARRATIVE: CASE EVENT DATE: 20060130
